FAERS Safety Report 8050787-4 (Version None)
Quarter: 2012Q1

REPORT INFORMATION
  Report Type: 
  Country: None (occurrence: None)
  Receive Date: 20120117
  Receipt Date: 20120112
  Transmission Date: 20120608
  Serious: Yes (Congenital Anomaly, Other)
  Sender: FDA-Public Use
  Company Number: GB-ABBOTT-11P-167-0857779-00

PATIENT
  Sex: Male

DRUGS (4)
  1. ATAZANAVIR [Suspect]
     Indication: MATERNAL EXPOSURE TIMING UNSPECIFIED
     Route: 064
  2. ATRIPLA [Suspect]
     Indication: MATERNAL EXPOSURE TIMING UNSPECIFIED
     Route: 064
  3. NORVIR [Suspect]
     Indication: MATERNAL EXPOSURE TIMING UNSPECIFIED
     Route: 064
  4. TRUVADA [Suspect]
     Indication: MATERNAL EXPOSURE TIMING UNSPECIFIED
     Route: 064

REACTIONS (8)
  - FACIAL PARESIS [None]
  - RESPIRATORY DISTRESS [None]
  - CRYPTORCHISM [None]
  - SEPSIS [None]
  - CONGENITAL TERATOMA [None]
  - CONJUNCTIVAL HAEMORRHAGE [None]
  - PELVIC MASS [None]
  - FOETAL EXPOSURE DURING PREGNANCY [None]
